FAERS Safety Report 10147170 (Version 3)
Quarter: 2014Q2

REPORT INFORMATION
  Report Type: Report from Study
  Country: ES (occurrence: ES)
  Receive Date: 20140501
  Receipt Date: 20140507
  Transmission Date: 20141212
  Serious: Yes (Life-Threatening, Hospitalization)
  Sender: FDA-Public Use
  Company Number: PHHO2014ES005855

PATIENT
  Sex: 0

DRUGS (3)
  1. TACROLIMUS [Suspect]
     Indication: LIVER TRANSPLANT
     Route: 048
     Dates: start: 20140411, end: 20140418
  2. MYCOPHENOLATE MOFETIL [Suspect]
     Indication: LIVER TRANSPLANT
     Dosage: UNK
     Dates: start: 20140408, end: 20140418
  3. MYCOPHENOLATE MOFETIL [Suspect]
     Dosage: UNK
     Dates: start: 20140422

REACTIONS (2)
  - Osmotic demyelination syndrome [Not Recovered/Not Resolved]
  - Cerebral atrophy [Not Recovered/Not Resolved]
